FAERS Safety Report 6289358-9 (Version None)
Quarter: 2009Q3

REPORT INFORMATION
  Report Type: 
  Country: None (occurrence: None)
  Receive Date: 20090723
  Receipt Date: 20090723
  Transmission Date: 20100115
  Serious: No
  Sender: FDA-Public Use
  Company Number: None

PATIENT
  Age: 41 Year
  Sex: Female
  Weight: 79.3795 kg

DRUGS (1)
  1. ZOLOFT [Suspect]
     Indication: ANXIETY
     Dosage: 150MG DAILY PO ABOUT 6 TO 8 MONTHS
     Route: 048

REACTIONS (2)
  - DRUG INEFFECTIVE [None]
  - SUBSTANCE ABUSE [None]
